FAERS Safety Report 26128540 (Version 1)
Quarter: 2025Q4

REPORT INFORMATION
  Report Type: Spontaneous
  Country: JP (occurrence: JP)
  Receive Date: 20251207
  Receipt Date: 20251207
  Transmission Date: 20260118
  Serious: Yes (Other)
  Sender: BEIGENE
  Company Number: JP-BEONEMEDICINES-BGN-2025-010883

PATIENT
  Age: 83 Year
  Sex: Male

DRUGS (1)
  1. BRUKINSA [Suspect]
     Active Substance: ZANUBRUTINIB
     Indication: Chronic lymphocytic leukaemia
     Dosage: 320 MILLIGRAM (4 CAPSULES)
     Dates: start: 20250630, end: 20251020

REACTIONS (3)
  - Richter^s syndrome [Unknown]
  - Neutrophil count decreased [Unknown]
  - Lymphocyte count increased [Unknown]
